FAERS Safety Report 23883976 (Version 1)
Quarter: 2024Q2

REPORT INFORMATION
  Report Type: Other
  Country: JP (occurrence: JP)
  Receive Date: 20240522
  Receipt Date: 20240522
  Transmission Date: 20240716
  Serious: Yes (Hospitalization, Other)
  Sender: FDA-Public Use
  Company Number: JP-Nuvo Pharmaceuticals Inc-2157292

PATIENT
  Age: 72 Year
  Sex: Male

DRUGS (9)
  1. OXYCODONE HYDROCHLORIDE [Suspect]
     Active Substance: OXYCODONE HYDROCHLORIDE
     Indication: Cancer pain
     Route: 048
  2. DEXAMETHASONE [Suspect]
     Active Substance: DEXAMETHASONE
     Route: 042
  3. ETOPOSIDE [Concomitant]
     Active Substance: ETOPOSIDE
     Route: 065
  4. CISPLATIN [Concomitant]
     Active Substance: CISPLATIN
     Route: 065
  5. FENTANYL [Concomitant]
     Active Substance: FENTANYL\FENTANYL CITRATE
     Route: 062
  6. ABIRATERONE. [Concomitant]
     Active Substance: ABIRATERONE ACETATE
     Route: 065
  7. DEGARELIX [Concomitant]
     Active Substance: DEGARELIX
     Route: 065
  8. FOSAPREPITANT [Suspect]
     Active Substance: FOSAPREPITANT
     Route: 042
  9. PALONOSETRON. [Suspect]
     Active Substance: PALONOSETRON HYDROCHLORIDE
     Route: 042

REACTIONS (4)
  - Respiratory depression [Recovering/Resolving]
  - Overdose [Unknown]
  - Drug interaction [Unknown]
  - Sedation complication [Recovering/Resolving]
